FAERS Safety Report 6111395-5 (Version None)
Quarter: 2009Q1

REPORT INFORMATION
  Report Type: 
  Country: None (occurrence: None)
  Receive Date: 20090309
  Receipt Date: 20090223
  Transmission Date: 20090719
  Serious: Yes (Hospitalization)
  Sender: FDA-Public Use
  Company Number: 2008AL001094

PATIENT
  Age: 67 Year
  Sex: Male

DRUGS (11)
  1. DIGOXIN [Suspect]
     Indication: ATRIAL FIBRILLATION
     Dosage: 0.125MG, HALFTAB, QD, PO
     Route: 048
     Dates: end: 20090205
  2. CLONAPEZAM [Concomitant]
  3. WARFARIN SODIUM [Concomitant]
  4. NOVOLOG MIX 70/30 [Concomitant]
  5. AMIODARONE HCL [Concomitant]
  6. ALFACALCIDOL [Concomitant]
  7. SIMVASTATIN [Concomitant]
  8. ALLOPURINOL [Concomitant]
  9. LEVOTHYROXINE [Concomitant]
  10. GLICLAZIDE [Concomitant]
  11. FOLIC ACID [Concomitant]

REACTIONS (3)
  - BRADYCARDIA [None]
  - CARDIOACTIVE DRUG LEVEL INCREASED [None]
  - THERAPEUTIC AGENT TOXICITY [None]
